FAERS Safety Report 5927314-8 (Version None)
Quarter: 2008Q4

REPORT INFORMATION
  Report Type: 
  Country: None (occurrence: None)
  Receive Date: 20081017
  Receipt Date: 20080929
  Transmission Date: 20090506
  Serious: Yes (Death, Congenital Anomaly, Other)
  Sender: FDA-Public Use
  Company Number: 060003L08TUR

PATIENT

DRUGS (1)
  1. CLOMIPHENE CITRATE [Suspect]
     Indication: OVULATION INDUCTION
     Dosage: IVF

REACTIONS (4)
  - ABORTION INDUCED [None]
  - CONGENITAL ANOMALY [None]
  - CONJOINED TWINS [None]
  - MATERNAL DRUGS AFFECTING FOETUS [None]
